FAERS Safety Report 11996062 (Version 1)
Quarter: 2016Q1

REPORT INFORMATION
  Report Type: Spontaneous
  Country: DE (occurrence: DE)
  Receive Date: 20160203
  Receipt Date: 20160203
  Transmission Date: 20160526
  Serious: Yes (Other)
  Sender: FDA-Public Use
  Company Number: DE-TEVA-630189GER

PATIENT
  Age: 0 Year
  Sex: Female
  Weight: 3.4 kg

DRUGS (7)
  1. FOLIO JODFREI [Concomitant]
     Indication: PROPHYLAXIS OF NEURAL TUBE DEFECT
     Dosage: .4 MILLIGRAM DAILY;
     Route: 064
  2. ULCOGANT [Concomitant]
     Active Substance: SUCRALFATE
     Indication: GASTROOESOPHAGEAL REFLUX DISEASE
     Dosage: 3 GRAM DAILY;
     Route: 064
     Dates: start: 20130208, end: 20130213
  3. GAVISCON [Concomitant]
     Active Substance: ALUMINUM HYDROXIDE\MAGNESIUM CARBONATE
     Indication: GASTROOESOPHAGEAL REFLUX DISEASE
     Dosage: 1 TO 3 TIMES PER DAY IF REQUIRED
     Route: 064
     Dates: start: 20121212, end: 20130922
  4. ESOMEPRAZOLE [Suspect]
     Active Substance: ESOMEPRAZOLE
     Indication: GASTROOESOPHAGEAL REFLUX DISEASE
     Dosage: 80 MILLIGRAM DAILY; 80 [MG/D ]/ UNTIL WEEK 6: 80 MG/D, AFTER WEEK 6: 40 MG/D
     Route: 064
     Dates: start: 20121212, end: 2013
  5. PANTOPRAZOL [Suspect]
     Active Substance: PANTOPRAZOLE SODIUM
     Dosage: 40 MILLIGRAM DAILY; 60 [MG/D ]/ FOR A FEW DAYS 60 MG/D THAN 40 MG/D
     Route: 064
     Dates: start: 2013, end: 20130922
  6. ESOMEPRAZOLE [Suspect]
     Active Substance: ESOMEPRAZOLE
     Dosage: 40 MILLIGRAM DAILY;
     Route: 064
     Dates: start: 2013, end: 20130215
  7. PANTOPRAZOL [Suspect]
     Active Substance: PANTOPRAZOLE SODIUM
     Indication: GASTROOESOPHAGEAL REFLUX DISEASE
     Dosage: 60 MILLIGRAM DAILY; 60 [MG/D ]/ FOR A FEW DAYS 60 MG/D THAN 40 MG/D
     Route: 064
     Dates: start: 20130216, end: 2013

REACTIONS (1)
  - Vitiligo [Not Recovered/Not Resolved]
